FAERS Safety Report 4868018-2 (Version None)
Quarter: 2005Q4

REPORT INFORMATION
  Report Type: 
  Country: None (occurrence: None)
  Receive Date: 20051229
  Receipt Date: 20051222
  Transmission Date: 20060501
  Serious: Yes (Other)
  Sender: FDA-Public Use
  Company Number: CA-BOEHRINGER INGELHEIM PHARMACEUTICALS, INC.-2005-BP-21795BP

PATIENT
  Age: 63 Year
  Sex: Female
  Weight: 111.11 kg

DRUGS (2)
  1. PERSANTINE AMPULES [Suspect]
     Route: 042
  2. CARDIOLITE [Suspect]

REACTIONS (2)
  - DYSPNOEA [None]
  - ERYTHEMA [None]
